FAERS Safety Report 21362099 (Version 1)
Quarter: 2022Q3

REPORT INFORMATION
  Report Type: Spontaneous
  Country: US (occurrence: US)
  Receive Date: 20220922
  Receipt Date: 20220922
  Transmission Date: 20221026
  Serious: No
  Sender: FDA-Public Use
  Company Number: US-Accord-275773

PATIENT
  Sex: Male

DRUGS (1)
  1. LEUPROLIDE [Suspect]
     Active Substance: LEUPROLIDE
     Indication: Product used for unknown indication
     Dosage: EVERY 6 MONTHS
     Route: 058

REACTIONS (1)
  - Drug ineffective [Unknown]
